FAERS Safety Report 7756787 (Version 3)
Quarter: 2013Q1

REPORT INFORMATION
  Report Type: Spontaneous
  Country: CA (occurrence: CA)
  Receive Date: 20110112
  Receipt Date: 20130118
  Transmission Date: 20140127
  Serious: Yes (Other)
  Sender: FDA-Public Use
  Company Number: PHHY2011CA00458

PATIENT
  Sex: Female

DRUGS (3)
  1. ACLASTA [Suspect]
     Indication: OSTEOPOROSIS
     Dosage: 5 MG, UNK
     Route: 042
     Dates: start: 20100202
  2. ACLASTA [Suspect]
     Dosage: UNK
     Route: 042
     Dates: start: 20110201
  3. ACLASTA [Suspect]
     Dosage: UNK
     Route: 042
     Dates: start: 20120210

REACTIONS (3)
  - Facial pain [Unknown]
  - Toothache [Unknown]
  - Oropharyngeal pain [Unknown]
